FAERS Safety Report 4755404-4 (Version None)
Quarter: 2005Q3

REPORT INFORMATION
  Report Type: 
  Country: None (occurrence: None)
  Receive Date: 20050826
  Receipt Date: 20050211
  Transmission Date: 20060218
  Serious: Yes (Death)
  Sender: FDA-Public Use
  Company Number: USA-2003-0006642

PATIENT
  Age: 28 Year
  Sex: Female
  Weight: 66.7 kg

DRUGS (4)
  1. OXYCODONE HCL [Suspect]
  2. METHADONE HCL [Suspect]
  3. ALPRAZOLAM [Suspect]
  4. MIRTAZAPINE [Suspect]

REACTIONS (3)
  - ACCIDENTAL OVERDOSE [None]
  - COMA [None]
  - MULTIPLE DRUG OVERDOSE [None]
